FAERS Safety Report 10714831 (Version 3)
Quarter: 2015Q2

REPORT INFORMATION
  Report Type: Spontaneous
  Country: JP (occurrence: JP)
  Receive Date: 20150115
  Receipt Date: 20150623
  Transmission Date: 20150821
  Serious: Yes (Death, Hospitalization, Other)
  Sender: FDA-Public Use
  Company Number: JP-GLAXOSMITHKLINE-B1019917A

PATIENT
  Age: 57 Year
  Sex: Male
  Weight: 76 kg

DRUGS (6)
  1. RECALBON [Suspect]
     Active Substance: MINODRONIC ACID
     Indication: PSEUDARTHROSIS
     Dosage: 50 MG, QD
     Route: 048
     Dates: start: 20130820, end: 20140711
  2. LAMOTRIGINE. [Suspect]
     Active Substance: LAMOTRIGINE
     Dosage: 25 MG, BID
     Route: 048
     Dates: start: 201407, end: 20140711
  3. LAMOTRIGINE. [Suspect]
     Active Substance: LAMOTRIGINE
     Indication: EPILEPSY
     Dosage: 25 MG, BID
     Route: 048
     Dates: start: 20140516, end: 20140623
  4. LAMOTRIGINE. [Suspect]
     Active Substance: LAMOTRIGINE
     Indication: EPILEPSY
     Dosage: 25 MG, QD
     Route: 048
     Dates: start: 20140508, end: 20140515
  5. DEPAKENE [Suspect]
     Active Substance: VALPROIC ACID
     Indication: EPILEPSY
     Dosage: 600 MG, BID
     Route: 048
     Dates: start: 20130228, end: 20140711
  6. DEPAKENE [Suspect]
     Active Substance: VALPROIC ACID
     Indication: EPILEPSY

REACTIONS (19)
  - Rash [Fatal]
  - Staphylococcal bacteraemia [Unknown]
  - General physical health deterioration [Unknown]
  - Toxic epidermal necrolysis [Fatal]
  - Pyrexia [Unknown]
  - Rash [Recovered/Resolved]
  - Blood pressure decreased [Unknown]
  - Hyporesponsive to stimuli [Unknown]
  - Hepatic failure [Fatal]
  - Gait disturbance [Unknown]
  - Pigmentation disorder [Unknown]
  - Papule [Unknown]
  - Drug reaction with eosinophilia and systemic symptoms [Fatal]
  - Septic shock [Unknown]
  - Platelet count decreased [Unknown]
  - Fall [Unknown]
  - Lymphadenopathy [Unknown]
  - Rubella [Unknown]
  - Liver disorder [Unknown]

NARRATIVE: CASE EVENT DATE: 2014
